FAERS Safety Report 24078107 (Version 2)
Quarter: 2024Q3

REPORT INFORMATION
  Report Type: Report from Study
  Country: US (occurrence: US)
  Receive Date: 20240711
  Receipt Date: 20240715
  Transmission Date: 20241016
  Serious: Yes (Other)
  Sender: ABBVIE
  Company Number: US-ABBVIE-5832131

PATIENT
  Sex: Female

DRUGS (2)
  1. RINVOQ [Suspect]
     Active Substance: UPADACITINIB
     Indication: Dermatitis atopic
     Route: 048
     Dates: start: 20240123
  2. ALEVE [Suspect]
     Active Substance: NAPROXEN SODIUM
     Indication: Product used for unknown indication
     Route: 065

REACTIONS (5)
  - Knee arthroplasty [Recovering/Resolving]
  - Dermatitis atopic [Not Recovered/Not Resolved]
  - Gastrointestinal ulcer [Recovering/Resolving]
  - Nausea [Unknown]
  - Faeces discoloured [Unknown]

NARRATIVE: CASE EVENT DATE: 20240101
